FAERS Safety Report 6110508-9 (Version None)
Quarter: 2009Q1

REPORT INFORMATION
  Report Type: 
  Country: None (occurrence: None)
  Receive Date: 20090310
  Receipt Date: 20090306
  Transmission Date: 20090719
  Serious: No
  Sender: FDA-Public Use
  Company Number: US-B.I. PHARMACEUTICALS,INC./RIDGEFIELD-2009-BP-02814BP

PATIENT
  Sex: Female

DRUGS (5)
  1. ATROVENT HFA [Suspect]
     Indication: ASTHMA
     Route: 055
     Dates: start: 20050101
  2. COUMADIN [Concomitant]
     Indication: ATRIAL FIBRILLATION
     Dates: start: 19970101
  3. RYTHMOL [Concomitant]
     Indication: TACHYCARDIA
     Dates: start: 20040101
  4. DILTIAZEM [Concomitant]
     Indication: TACHYCARDIA
     Dates: start: 19970101
  5. DILTIAZEM [Concomitant]
     Indication: ATRIAL FIBRILLATION

REACTIONS (1)
  - BRONCHIECTASIS [None]
